FAERS Safety Report 4470148-4 (Version None)
Quarter: 2004Q3

REPORT INFORMATION
  Report Type: 
  Country: None (occurrence: None)
  Receive Date: 20040910
  Receipt Date: 20040728
  Transmission Date: 20050211
  Serious: No
  Sender: FDA-Public Use
  Company Number: 2004226652US

PATIENT
  Age: 75 Year
  Sex: Female
  Weight: 45.4 kg

DRUGS (2)
  1. BEXTRA [Suspect]
     Indication: ARTHRITIS
     Dosage: 10 MG, QD, ORAL
     Route: 048
     Dates: start: 20040727
  2. LISINOPRIL [Concomitant]

REACTIONS (1)
  - MUSCLE CRAMP [None]
